FAERS Safety Report 15193881 (Version 1)
Quarter: 2018Q3

REPORT INFORMATION
  Report Type: Spontaneous
  Country: US (occurrence: US)
  Receive Date: 20180725
  Receipt Date: 20180725
  Transmission Date: 20181010
  Serious: Yes (Death)
  Sender: FDA-Public Use
  Company Number: US-ROCHE-2159335

PATIENT
  Age: 75 Year
  Sex: Male

DRUGS (7)
  1. MORPHINE SULFATE. [Concomitant]
     Active Substance: MORPHINE SULFATE
  2. FUROSEMIDE. [Concomitant]
     Active Substance: FUROSEMIDE
  3. ESCITALOPRAM [Concomitant]
     Active Substance: ESCITALOPRAM OXALATE
  4. ESBRIET [Suspect]
     Active Substance: PIRFENIDONE
     Indication: RESPIRATORY DISORDER
     Route: 048
     Dates: start: 20180120
  5. DOXYCLINE [Concomitant]
     Active Substance: DOXYCYCLINE
  6. IPRATROPIUM [Concomitant]
     Active Substance: IPRATROPIUM
  7. SMZ?TMP [Concomitant]
     Active Substance: SULFAMETHOXAZOLE\TRIMETHOPRIM

REACTIONS (1)
  - Death [Fatal]

NARRATIVE: CASE EVENT DATE: 20180715
